FAERS Safety Report 11221004 (Version 1)
Quarter: 2015Q2

REPORT INFORMATION
  Report Type: Spontaneous
  Country: US (occurrence: US)
  Receive Date: 20150626
  Receipt Date: 20150626
  Transmission Date: 20150821
  Serious: No
  Sender: FDA-Public Use
  Company Number: US-ASTRAZENECA-2015SE60025

PATIENT
  Sex: Female

DRUGS (2)
  1. LESCOL [Concomitant]
     Active Substance: FLUVASTATIN SODIUM
  2. CRESTOR [Suspect]
     Active Substance: ROSUVASTATIN CALCIUM
     Route: 048

REACTIONS (3)
  - Pain [Unknown]
  - Chromaturia [Unknown]
  - Drug intolerance [Unknown]
